FAERS Safety Report 13300912 (Version 1)
Quarter: 2017Q1

REPORT INFORMATION
  Report Type: Spontaneous
  Country: DE (occurrence: DE)
  Receive Date: 20170307
  Receipt Date: 20170307
  Transmission Date: 20170428
  Serious: Yes (Other)
  Sender: FDA-Public Use
  Company Number: DE-SUN PHARMACEUTICAL INDUSTRIES LTD-2017RR-134685

PATIENT
  Age: 1 Day
  Sex: Male
  Weight: 4.16 kg

DRUGS (4)
  1. CITALOPRAM [Suspect]
     Active Substance: CITALOPRAM HYDROBROMIDE
     Indication: DEPRESSION
     Dosage: 20 [MG/D (10)] DOSAGE REDUCTION TO 10 MG/D FOUR WEEKS BEFORE DELIVERY; 0.-38.2. GESTATIONAL WEEK
     Route: 064
     Dates: start: 20160308, end: 20161201
  2. FOLIC ACID. [Concomitant]
     Active Substance: FOLIC ACID
     Indication: PROPHYLAXIS OF NEURAL TUBE DEFECT
     Dosage: UNKNOWN TRIMESTER
     Route: 064
  3. PARACETAMOL [Concomitant]
     Active Substance: ACETAMINOPHEN
     Indication: PAIN
     Dosage: UNK, PRN, UNKNOWN TRIMESTER, ON DEMAND
     Route: 064
  4. L-THYROXIN [Concomitant]
     Active Substance: LEVOTHYROXINE SODIUM
     Indication: HYPOTHYROIDISM
     Dosage: 88 NG, QD, 0.-38.2. GESTATIONAL WEEK
     Route: 064
     Dates: start: 20160308, end: 20161201

REACTIONS (7)
  - Respiratory disorder neonatal [Recovered/Resolved]
  - Large for dates baby [Recovering/Resolving]
  - Agitation neonatal [Recovered/Resolved]
  - Hypoglycaemia neonatal [Recovered/Resolved]
  - Hypertonia neonatal [Recovered/Resolved]
  - Tremor neonatal [Recovered/Resolved]
  - Congenital choroid plexus cyst [Unknown]

NARRATIVE: CASE EVENT DATE: 20161201
